FAERS Safety Report 4312032-2 (Version None)
Quarter: 2004Q1

REPORT INFORMATION
  Report Type: 
  Country: None (occurrence: None)
  Receive Date: 20040305
  Receipt Date: 20020225
  Transmission Date: 20041129
  Serious: Yes (Hospitalization, Other)
  Sender: FDA-Public Use
  Company Number: PHEH2002US02080

PATIENT
  Age: 46 Year
  Sex: Male
  Weight: 75 kg

DRUGS (6)
  1. GLIPIZIDE [Concomitant]
  2. LAMISIL [Suspect]
     Indication: TINEA INFECTION
     Route: 048
     Dates: start: 19991202
  3. VIAGRA [Concomitant]
  4. GLUCOPHAGE [Concomitant]
  5. AMARYL [Concomitant]
  6. NIZORAL [Concomitant]

REACTIONS (10)
  - ABDOMINAL PAIN [None]
  - ASCITES [None]
  - CARDIAC FAILURE CONGESTIVE [None]
  - CARDIOMEGALY [None]
  - CHEST PAIN [None]
  - CHOLELITHIASIS [None]
  - OEDEMA PERIPHERAL [None]
  - PULMONARY OEDEMA [None]
  - RENAL MASS [None]
  - TRICUSPID VALVE INCOMPETENCE [None]
